FAERS Safety Report 26190726 (Version 1)
Quarter: 2025Q4

REPORT INFORMATION
  Report Type: Spontaneous
  Country: GB (occurrence: GB)
  Receive Date: 20251223
  Receipt Date: 20251223
  Transmission Date: 20260118
  Serious: Yes (Other)
  Sender: RANBAXY
  Company Number: GB-MHRA-TPP30921000C7365476YC1765471299032

PATIENT
  Age: 55 Year
  Sex: Female
  Weight: 98 kg

DRUGS (7)
  1. CODEINE [Suspect]
     Active Substance: CODEINE
     Indication: Ill-defined disorder
     Dosage: UNK
     Route: 065
     Dates: start: 20251209
  2. CODEINE PHOSPHATE [Concomitant]
     Active Substance: CODEINE PHOSPHATE
     Indication: Ill-defined disorder
     Dosage: UNK, TAKE ONE OR TWO TABLETS FOUR TIMES A DAY WHEN R...
     Route: 065
     Dates: start: 20251208
  3. DOXYCYCLINE [Concomitant]
     Active Substance: DOXYCYCLINE
     Indication: Ill-defined disorder
     Dosage: UNK, ONE TO BE TAKEN ONCE DAILY
     Route: 065
     Dates: start: 20251209
  4. PREDNISOLONE [Concomitant]
     Active Substance: PREDNISOLONE
     Indication: Ill-defined disorder
     Dosage: UNK, TAKE EIGHT TABLETS AS A SINGLE DOSE ONCE DAILY ...
     Route: 065
     Dates: start: 20251209
  5. MONTELUKAST [Concomitant]
     Active Substance: MONTELUKAST
     Indication: Ill-defined disorder
     Dosage: UNK, ONE TO BE TAKEN AT NIGHT
     Route: 065
     Dates: start: 20250317
  6. OMEPRAZOLE [Concomitant]
     Active Substance: OMEPRAZOLE
     Indication: Ill-defined disorder
     Dosage: UNK,TAKE ONE TWICE DAILY
     Route: 065
     Dates: start: 20250317
  7. BECLOMETHASONE\FORMOTEROL [Concomitant]
     Active Substance: BECLOMETHASONE\FORMOTEROL
     Indication: Ill-defined disorder
     Dosage: UNK, MAINTENANCE, ONE PUFF TWICE A DAY. FOR IMMEDIAT...
     Route: 065
     Dates: start: 20250626

REACTIONS (1)
  - Wheezing [Recovering/Resolving]

NARRATIVE: CASE EVENT DATE: 20251209
